FAERS Safety Report 13297285 (Version 1)
Quarter: 2017Q1

REPORT INFORMATION
  Report Type: Spontaneous
  Country: US (occurrence: US)
  Receive Date: 20170303
  Receipt Date: 20170303
  Transmission Date: 20170428
  Serious: Yes (Death)
  Sender: FDA-Public Use
  Company Number: None

PATIENT
  Age: 71 Year
  Sex: Male

DRUGS (1)
  1. ENTECAVIR 0.5MG AUROBINDO PHARMA [Suspect]
     Active Substance: ENTECAVIR
     Route: 048
     Dates: start: 20120802, end: 20170213

REACTIONS (3)
  - Colon cancer metastatic [None]
  - Hepatic cirrhosis [None]
  - Neoplasm malignant [None]

NARRATIVE: CASE EVENT DATE: 20170213
